FAERS Safety Report 4613187-2 (Version None)
Quarter: 2005Q1

REPORT INFORMATION
  Report Type: 
  Country: None (occurrence: None)
  Receive Date: 20050316
  Receipt Date: 20050310
  Transmission Date: 20050727
  Serious: Yes (Hospitalization, Other)
  Sender: FDA-Public Use
  Company Number: 2005043312

PATIENT
  Age: 66 Year
  Sex: Male
  Weight: 83.0083 kg

DRUGS (8)
  1. LIPITOR [Suspect]
     Indication: BLOOD CHOLESTEROL INCREASED
     Dosage: 20 MG (20 MG, 1 IN 1 D), UNKNOWN
     Dates: start: 20040101
  2. CLOPIDOGREL BISULFATE [Concomitant]
  3. CANDESARTAN CILEXETIL (CANDESARTAN CILEXETIL) [Concomitant]
  4. ASPIRIN [Concomitant]
  5. UBIDECARENONE (UBIDECARENONE) [Concomitant]
  6. CELERY SEED EXTRACT (CELERY SEED EXTRACT) [Concomitant]
  7. COLCHICINE (COLCHINCINE) [Concomitant]
  8. PREDNISONE [Concomitant]

REACTIONS (4)
  - ARTHRALGIA [None]
  - BACK PAIN [None]
  - GOUT [None]
  - VASCULAR BYPASS GRAFT [None]
